FAERS Safety Report 5517624-0 (Version None)
Quarter: 2007Q4

REPORT INFORMATION
  Report Type: 
  Country: None (occurrence: None)
  Receive Date: 20071114
  Receipt Date: 20071107
  Transmission Date: 20080405
  Serious: Yes (Other)
  Sender: FDA-Public Use
  Company Number: US-PFIZER INC-2007094398

PATIENT
  Age: 81 Year
  Sex: Male

DRUGS (7)
  1. LIPITOR [Suspect]
     Indication: BLOOD CHOLESTEROL INCREASED
  2. NORVASC [Concomitant]
  3. ALLOPURINOL [Concomitant]
  4. XALATAN [Concomitant]
  5. ACETYLSALICYLIC ACID SRT [Concomitant]
  6. TAMSULOSIN HCL [Concomitant]
  7. VASOTEC [Concomitant]

REACTIONS (4)
  - ASTHENIA [None]
  - FEELING COLD [None]
  - MUSCLE ATROPHY [None]
  - WEIGHT DECREASED [None]
